FAERS Safety Report 5392123-8 (Version None)
Quarter: 2007Q3

REPORT INFORMATION
  Report Type: 
  Country: None (occurrence: None)
  Receive Date: 20070720
  Receipt Date: 20070712
  Transmission Date: 20080115
  Serious: Yes (Other)
  Sender: FDA-Public Use
  Company Number: US-JNJFOC-20070702950

PATIENT
  Sex: Female

DRUGS (11)
  1. REMICADE [Suspect]
     Indication: PSORIASIS
     Route: 042
  2. REMICADE [Suspect]
     Indication: RHEUMATOID ARTHRITIS
     Route: 042
  3. SYNTHROID [Concomitant]
  4. MOBIC [Concomitant]
  5. VITAMIN D [Concomitant]
  6. LABETALOL HCL [Concomitant]
  7. CALCIUM CHLORIDE [Concomitant]
  8. MAGNESIUM SULFATE [Concomitant]
  9. ZANTAC 150 [Concomitant]
  10. HUMALOG [Concomitant]
  11. HUMULIN N [Concomitant]

REACTIONS (2)
  - HYPERGLYCAEMIA [None]
  - TYPE 1 DIABETES MELLITUS [None]
